FAERS Safety Report 6193243-0 (Version None)
Quarter: 2009Q2

REPORT INFORMATION
  Report Type: 
  Country: None (occurrence: None)
  Receive Date: 20090518
  Receipt Date: 20090508
  Transmission Date: 20091009
  Serious: Yes (Death, Hospitalization)
  Sender: FDA-Public Use
  Company Number: A0784444A

PATIENT
  Age: 55 Year
  Sex: Female
  Weight: 72.7 kg

DRUGS (1)
  1. AVANDIA [Suspect]
     Dosage: 2MG PER DAY
     Route: 048
     Dates: start: 20051201, end: 20070101

REACTIONS (5)
  - CARDIO-RESPIRATORY ARREST [None]
  - DEATH [None]
  - DIABETES MELLITUS [None]
  - HYPERTROPHIC CARDIOMYOPATHY [None]
  - RENAL FAILURE CHRONIC [None]
